FAERS Safety Report 7178523-4 (Version None)
Quarter: 2010Q4

REPORT INFORMATION
  Report Type: 
  Country: None (occurrence: None)
  Receive Date: 20101221
  Receipt Date: 20101210
  Transmission Date: 20110411
  Serious: Yes (Other)
  Sender: FDA-Public Use
  Company Number: PT-AMGEN-PRTSP2010006218

PATIENT

DRUGS (13)
  1. ENBREL [Suspect]
     Indication: RHEUMATOID ARTHRITIS
     Dosage: 50 MG, WEEKLY
     Route: 058
     Dates: start: 20090604, end: 20100101
  2. ENBREL [Suspect]
     Dosage: 25 MG, UNK
     Dates: start: 20100101
  3. PREDNISOLONE [Suspect]
     Indication: RHEUMATOID ARTHRITIS
     Dosage: 5 MG, 1X/DAY
     Dates: end: 20101101
  4. NAPROXEN [Concomitant]
     Dosage: UNK
     Dates: start: 20090910
  5. FOLICIL [Concomitant]
     Dosage: UNK
     Dates: start: 20100820
  6. PLAQUINOL [Concomitant]
     Dosage: UNK
     Dates: start: 20100820
  7. GLUCOSAMINE [Concomitant]
     Dosage: UNK
     Dates: start: 20091217
  8. FOSAVANCE [Concomitant]
     Dosage: UNK
     Dates: start: 20090604
  9. PRETERAX [Concomitant]
     Dosage: UNK
     Dates: start: 20090402
  10. LASIX [Concomitant]
     Dosage: UNK
     Dates: start: 20090402
  11. DAFLON [Concomitant]
     Dosage: UNK
     Dates: start: 20090115
  12. WARFARIN SODIUM [Concomitant]
     Dosage: UNK
     Dates: start: 20040101
  13. INDAPAMIDE [Concomitant]
     Dosage: UNK

REACTIONS (2)
  - HIDRADENITIS [None]
  - PSORIASIS [None]
